FAERS Safety Report 12736597 (Version 2)
Quarter: 2016Q3

REPORT INFORMATION
  Report Type: Report from Study
  Country: BR (occurrence: BR)
  Receive Date: 20160913
  Receipt Date: 20160926
  Transmission Date: 20161109
  Serious: Yes (Other)
  Sender: FDA-Public Use
  Company Number: PHHY2016BR063558

PATIENT
  Sex: Female
  Weight: 76 kg

DRUGS (5)
  1. CLONAZEPAM. [Concomitant]
     Active Substance: CLONAZEPAM
     Indication: DEPRESSION
     Dosage: 2 DF, QD
     Route: 048
     Dates: start: 2008
  2. SANDOSTATIN LAR DEPOT [Suspect]
     Active Substance: OCTREOTIDE ACETATE
     Dosage: 30 MG, Q2MO
     Route: 030
  3. AMITRIPTYLINE [Concomitant]
     Active Substance: AMITRIPTYLINE
     Indication: DEPRESSION
     Dosage: 20 MG (1 TABLET), QD
     Route: 048
     Dates: start: 2008
  4. SANDOSTATIN LAR DEPOT [Suspect]
     Active Substance: OCTREOTIDE ACETATE
     Dosage: 30 MG, EVERY 40 DAYS
     Route: 030
  5. SANDOSTATIN LAR DEPOT [Suspect]
     Active Substance: OCTREOTIDE ACETATE
     Indication: ACROMEGALY
     Dosage: 30 MG, QMO (EVERY 28 DAYS)
     Route: 030
     Dates: start: 201203

REACTIONS (24)
  - Swelling face [Recovering/Resolving]
  - Tongue biting [Recovering/Resolving]
  - Joint stiffness [Unknown]
  - Lip swelling [Recovering/Resolving]
  - Neoplasm progression [Unknown]
  - Mood altered [Unknown]
  - Visual impairment [Unknown]
  - Heart rate irregular [Unknown]
  - Hormone level abnormal [Recovering/Resolving]
  - Depressed mood [Unknown]
  - Arthropathy [Unknown]
  - Paraesthesia [Unknown]
  - Limb deformity [Unknown]
  - Inappropriate schedule of drug administration [Unknown]
  - Swelling [Unknown]
  - Weight decreased [Unknown]
  - Head deformity [Unknown]
  - Hypoaesthesia [Recovering/Resolving]
  - Weight increased [Recovering/Resolving]
  - Cardiovascular disorder [Unknown]
  - Bone deformity [Unknown]
  - Injection site pain [Unknown]
  - Dysentery [Recovering/Resolving]
  - Self esteem decreased [Unknown]
